FAERS Safety Report 7074413-6 (Version None)
Quarter: 2010Q4

REPORT INFORMATION
  Report Type: 
  Country: None (occurrence: None)
  Receive Date: 20101029
  Receipt Date: 20101022
  Transmission Date: 20110411
  Serious: Yes (Death)
  Sender: FDA-Public Use
  Company Number: GXKR2010JP10323

PATIENT
  Age: 83 Year
  Sex: Female

DRUGS (7)
  1. PREDNISOLONE (NGX) [Suspect]
     Indication: HYPEREOSINOPHILIC SYNDROME
     Dosage: 30 MG/DAY
     Route: 065
     Dates: start: 20081114
  2. PREDNISOLONE (NGX) [Suspect]
     Indication: LEUKAEMIA
     Dosage: 80 MG/DAY
     Route: 065
  3. METHYLPREDNISOLONE 4MG TAB [Suspect]
     Indication: HYPEREOSINOPHILIC SYNDROME
     Dosage: 500 MG/DAY PULSE THERAPY
     Route: 065
     Dates: start: 20081122
  4. METHYLPREDNISOLONE 4MG TAB [Suspect]
     Indication: LEUKAEMIA
  5. IMATINIB [Suspect]
     Indication: HYPEREOSINOPHILIC SYNDROME
     Dosage: 100 MG/DAY
     Route: 065
     Dates: start: 20081123
  6. IMATINIB [Suspect]
     Indication: LEUKAEMIA
  7. HYDROXYUREA [Concomitant]
     Dosage: 2000 MG/DAY
     Dates: start: 20081117

REACTIONS (10)
  - ANURIA [None]
  - DIALYSIS [None]
  - DISSEMINATED INTRAVASCULAR COAGULATION [None]
  - HAEMORRHAGE SUBCUTANEOUS [None]
  - MOUTH HAEMORRHAGE [None]
  - PETECHIAE [None]
  - PULMONARY ALVEOLAR HAEMORRHAGE [None]
  - RENAL FAILURE [None]
  - RESPIRATORY FAILURE [None]
  - TUMOUR LYSIS SYNDROME [None]
